FAERS Safety Report 8822093 (Version 1)
Quarter: 2012Q4

REPORT INFORMATION
  Report Type: 
  Country: US (occurrence: US)
  Receive Date: 20121003
  Receipt Date: 20121003
  Transmission Date: 20130627
  Serious: Yes (Death, Hospitalization)
  Sender: FDA-Public Use
  Company Number: US-TEVA-362126USA

PATIENT
  Age: 62 Year
  Sex: Male
  Weight: 133.8 kg

DRUGS (2)
  1. CYTARABINE [Suspect]
     Indication: ACUTE MYELOID LEUKAEMIA
     Route: 042
     Dates: start: 20120705, end: 20120711
  2. DAUNORUBICIN [Suspect]
     Indication: ACUTE MYELOID LEUKAEMIA
     Route: 042
     Dates: start: 20120705, end: 20120707

REACTIONS (9)
  - Respiratory failure [Fatal]
  - Pulmonary haemorrhage [Fatal]
  - Atelectasis [Recovered/Resolved]
  - Neutropenia [None]
  - Thrombocytopenia [None]
  - Pulmonary alveolar haemorrhage [None]
  - PCO2 increased [None]
  - Bronchial secretion retention [None]
  - Pneumothorax [None]
